FAERS Safety Report 9121120 (Version 1)
Quarter: 2013Q1

REPORT INFORMATION
  Report Type: Report from Study
  Country: JP (occurrence: JP)
  Receive Date: 20130226
  Receipt Date: 20130226
  Transmission Date: 20140127
  Serious: Yes (Hospitalization)
  Sender: FDA-Public Use
  Company Number: JP-009507513-1302JPN011695

PATIENT
  Age: 59 Year
  Sex: Male
  Weight: 53 kg

DRUGS (10)
  1. PEGINTRON [Suspect]
     Indication: CHRONIC HEPATITIS C
     Dosage: 80 UG
     Route: 058
     Dates: start: 20120817, end: 20120929
  2. PEGINTRON [Suspect]
     Dosage: 1.5 UG/KG/WEEK
     Route: 058
  3. PEGINTRON [Suspect]
     Dosage: 80 UG
     Route: 058
     Dates: start: 20121222
  4. REBETOL [Suspect]
     Indication: CHRONIC HEPATITIS C
     Dosage: 800 MG, QD
     Route: 048
     Dates: start: 20120817, end: 20120918
  5. REBETOL [Suspect]
     Dosage: 400 MG, QD
     Route: 048
     Dates: start: 20120919, end: 20120929
  6. REBETOL [Suspect]
     Dosage: 400MG/ON ALTERNATE DAYS
     Route: 048
     Dates: start: 20120929, end: 20121005
  7. REBETOL [Suspect]
     Dosage: 200 MG/ON ALTERNATE DAYS
     Route: 048
     Dates: start: 20121004
  8. REBETOL [Suspect]
     Dosage: 600 MG, QD
     Route: 048
     Dates: start: 20121222
  9. TELAVIC [Suspect]
     Indication: CHRONIC HEPATITIS C
     Dosage: 2250 MG, QD
     Route: 048
     Dates: start: 20120817, end: 20121005
  10. URSO [Concomitant]
     Indication: CHRONIC HEPATITIS C
     Dosage: 600 DF, QD
     Route: 048

REACTIONS (1)
  - Pneumonia cytomegaloviral [Recovered/Resolved]
